FAERS Safety Report 9546831 (Version 2)
Quarter: 2013Q4

REPORT INFORMATION
  Report Type: Report from Study
  Country: ES (occurrence: ES)
  Receive Date: 20130924
  Receipt Date: 20131018
  Transmission Date: 20140711
  Serious: Yes (Other)
  Sender: FDA-Public Use
  Company Number: ES-BRISTOL-MYERS SQUIBB COMPANY-19367168

PATIENT
  Age: 63 Year
  Sex: Female

DRUGS (8)
  1. ORENCIA [Suspect]
     Indication: RHEUMATOID ARTHRITIS
     Dates: start: 20090718, end: 2009
  2. PREDNISONE [Concomitant]
     Dosage: 1DF: 2.5 UNITS NOS,ONE IN THE MORNING,ONE IN THE EVENING
  3. EFFERALGAN [Concomitant]
     Dosage: 1DF: 1UNIT NOS
  4. IBANDRONATE [Concomitant]
  5. NAPROXEN [Concomitant]
     Dosage: 1DF: 500UNITS NOS,AT MORNING
  6. CALCIUM + VITAMIN D [Concomitant]
     Dosage: 1DF: 500/400 UNITS NOS,AT MORNING AND NIGHT
  7. OMEPRAZOLE [Concomitant]
  8. TETRAZEPAM [Concomitant]
     Dosage: 1DF: 50 UNITS NOS,AT NIGHT

REACTIONS (1)
  - Erythema multiforme [Unknown]
